FAERS Safety Report 8315730 (Version 2)
Quarter: 2013Q1

REPORT INFORMATION
  Report Type: Spontaneous
  Country: US (occurrence: US)
  Receive Date: 20111229
  Receipt Date: 20130115
  Transmission Date: 20140127
  Serious: Yes (Death, Hospitalization, Other)
  Sender: FDA-Public Use
  Company Number: US-MPIJNJ-2011-06563

PATIENT
  Age: 82 Year
  Sex: Male

DRUGS (1)
  1. VELCADE [Suspect]
     Indication: PRODUCT USED FOR UNKNOWN INDICATION
     Dosage: 1.3 MG/M2, CYCLIC
     Route: 042
     Dates: start: 20110307, end: 20110418

REACTIONS (7)
  - Death [Fatal]
  - Hypoxia [Unknown]
  - Pneumonia aspiration [Fatal]
  - Tachycardia [Unknown]
  - Renal impairment [Unknown]
  - International normalised ratio increased [Unknown]
  - Hyperkalaemia [Unknown]
